FAERS Safety Report 19503635 (Version 1)
Quarter: 2021Q3

REPORT INFORMATION
  Report Type: Spontaneous
  Country: US (occurrence: US)
  Receive Date: 20210707
  Receipt Date: 20210707
  Transmission Date: 20211014
  Serious: Yes (Hospitalization)
  Sender: FDA-Public Use
  Company Number: US-MYLANLABS-2021M1039343

PATIENT
  Age: 20 Year
  Sex: Male

DRUGS (10)
  1. METOPROLOL. [Suspect]
     Active Substance: METOPROLOL
     Indication: CARDIAC FAILURE CONGESTIVE
     Route: 065
  2. ALDACTONE [Suspect]
     Active Substance: SPIRONOLACTONE
     Indication: CHEYNE-STOKES RESPIRATION
  3. METOPROLOL. [Suspect]
     Active Substance: METOPROLOL
     Indication: CHEYNE-STOKES RESPIRATION
  4. LASIX [Suspect]
     Active Substance: FUROSEMIDE
     Indication: CARDIAC FAILURE CONGESTIVE
     Route: 065
  5. ALDACTONE [Suspect]
     Active Substance: SPIRONOLACTONE
     Indication: CARDIAC FAILURE CONGESTIVE
     Route: 065
  6. MILRINONE [Suspect]
     Active Substance: MILRINONE
     Indication: CARDIAC FAILURE CONGESTIVE
     Route: 065
  7. ENALAPRIL [Suspect]
     Active Substance: ENALAPRIL
     Indication: CARDIAC FAILURE CONGESTIVE
     Route: 065
  8. ENALAPRIL [Suspect]
     Active Substance: ENALAPRIL
     Indication: CHEYNE-STOKES RESPIRATION
  9. MILRINONE [Suspect]
     Active Substance: MILRINONE
     Indication: CHEYNE-STOKES RESPIRATION
  10. LASIX [Suspect]
     Active Substance: FUROSEMIDE
     Indication: CHEYNE-STOKES RESPIRATION

REACTIONS (1)
  - Drug ineffective [Unknown]
